FAERS Safety Report 4645997-X (Version None)
Quarter: 2005Q2

REPORT INFORMATION
  Report Type: 
  Country: None (occurrence: None)
  Receive Date: 20050427
  Receipt Date: 20050422
  Transmission Date: 20051028
  Serious: Yes (Hospitalization)
  Sender: FDA-Public Use
  Company Number: 200511425FR

PATIENT
  Age: 20 Year
  Sex: Male

DRUGS (4)
  1. CLAFORAN [Suspect]
     Indication: HYPOXIA
     Route: 042
     Dates: start: 20050226, end: 20050302
  2. CLAFORAN [Suspect]
     Indication: LUNG DISORDER
     Route: 042
     Dates: start: 20050226, end: 20050302
  3. ERYTHROCINE [Suspect]
     Indication: HYPOXIA
     Route: 042
     Dates: start: 20050226, end: 20050302
  4. ERYTHROCINE [Suspect]
     Indication: LUNG DISORDER
     Route: 042
     Dates: start: 20050226, end: 20050302

REACTIONS (3)
  - HEPATITIS [None]
  - HEPATOCELLULAR DAMAGE [None]
  - HEPATOMEGALY [None]
